FAERS Safety Report 25362341 (Version 1)
Quarter: 2025Q2

REPORT INFORMATION
  Report Type: Spontaneous
  Country: HK (occurrence: HK)
  Receive Date: 20250527
  Receipt Date: 20250527
  Transmission Date: 20250717
  Serious: Yes (Life-Threatening, Hospitalization)
  Sender: STRIDES
  Company Number: HK-STRIDES ARCOLAB LIMITED-2025SP006337

PATIENT
  Age: 29 Year
  Sex: Female

DRUGS (12)
  1. PREDNISOLONE [Suspect]
     Active Substance: PREDNISOLONE
     Indication: Systemic lupus erythematosus
     Route: 065
  2. MYCOPHENOLIC ACID [Suspect]
     Active Substance: MYCOPHENOLIC ACID
     Indication: Systemic lupus erythematosus
     Route: 065
  3. RITUXIMAB [Concomitant]
     Active Substance: RITUXIMAB
     Indication: Posterior reversible encephalopathy syndrome
     Route: 065
     Dates: start: 2018
  4. METHYLPREDNISOLONE [Concomitant]
     Active Substance: METHYLPREDNISOLONE
     Indication: Seizure
     Route: 042
     Dates: start: 2018
  5. PIPERACILLIN SODIUM\TAZOBACTAM SODIUM [Concomitant]
     Active Substance: PIPERACILLIN SODIUM\TAZOBACTAM SODIUM
     Indication: Product used for unknown indication
     Route: 042
  6. MEROPENEM [Concomitant]
     Active Substance: MEROPENEM
     Indication: Product used for unknown indication
     Route: 042
  7. DEXAMETHASONE [Concomitant]
     Active Substance: DEXAMETHASONE
     Indication: COVID-19
     Route: 042
  8. SULFAMETHOXAZOLE\TRIMETHOPRIM [Concomitant]
     Active Substance: SULFAMETHOXAZOLE\TRIMETHOPRIM
     Indication: Product used for unknown indication
     Route: 042
  9. REMDESIVIR [Concomitant]
     Active Substance: REMDESIVIR
     Indication: COVID-19
     Route: 065
  10. ACYCLOVIR [Concomitant]
     Active Substance: ACYCLOVIR
     Indication: Herpes simplex
     Route: 042
  11. ACETYLCYSTEINE [Concomitant]
     Active Substance: ACETYLCYSTEINE
     Indication: Acute hepatic failure
     Route: 065
  12. HYDROXYCHLOROQUINE [Concomitant]
     Active Substance: HYDROXYCHLOROQUINE
     Indication: Systemic lupus erythematosus
     Route: 065
     Dates: end: 2020

REACTIONS (1)
  - Multisystem inflammatory syndrome in adults [Recovering/Resolving]
